FAERS Safety Report 20833901 (Version 1)
Quarter: 2022Q2

REPORT INFORMATION
  Report Type: 
  Country: None (occurrence: None)
  Receive Date: 20220516
  Receipt Date: 20220516
  Transmission Date: 20220720
  Serious: No
  Sender: FDA-Public Use
  Company Number: None

PATIENT
  Weight: 52 kg

DRUGS (21)
  1. AVASTIN [Suspect]
     Active Substance: BEVACIZUMAB
     Dates: start: 20220215, end: 20220215
  2. COMIRNATY [Suspect]
     Active Substance: TOZINAMERAN
     Dosage: R1
     Dates: start: 20220218, end: 20220218
  3. FERINJECT [Concomitant]
     Active Substance: FERRIC CARBOXYMALTOSE
  4. PANTOPRAZOLE [Concomitant]
     Active Substance: PANTOPRAZOLE
  5. CHOLECALCIFEROL [Concomitant]
     Active Substance: CHOLECALCIFEROL
  6. CYANOCOBALAMIN [Concomitant]
     Active Substance: CYANOCOBALAMIN
  7. SYMBICORT [Concomitant]
     Active Substance: BUDESONIDE\FORMOTEROL FUMARATE DIHYDRATE
  8. BACTRIM [Concomitant]
     Active Substance: SULFAMETHOXAZOLE\TRIMETHOPRIM
  9. CARBOMER [Concomitant]
     Active Substance: CARBOMER
  10. LEVOCETIRIZINE DIHYDROCHLORIDE [Concomitant]
     Active Substance: LEVOCETIRIZINE DIHYDROCHLORIDE
  11. ATORVASTATIN [Concomitant]
     Active Substance: ATORVASTATIN
  12. ACETAMINOPHEN [Concomitant]
     Active Substance: ACETAMINOPHEN
  13. MELATONIN [Concomitant]
     Active Substance: MELATONIN
  14. AMYLOCAINE HYDROCHLORIDE [Concomitant]
     Active Substance: AMYLOCAINE HYDROCHLORIDE
  15. LEVETIRACETAM [Concomitant]
     Active Substance: LEVETIRACETAM
  16. CYANOCOBALAMIN\PYRIDOXINE HYDROCHLORIDE\THIAMINE [Concomitant]
     Active Substance: CYANOCOBALAMIN\PYRIDOXINE HYDROCHLORIDE\THIAMINE
  17. VENLAFAXINE [Concomitant]
     Active Substance: VENLAFAXINE HYDROCHLORIDE
  18. ZOPICLONE [Concomitant]
     Active Substance: ZOPICLONE
  19. TCAPS [Concomitant]
  20. FOLIC ACID [Concomitant]
     Active Substance: FOLIC ACID
  21. POTASSIUM CHLORIDE [Concomitant]
     Active Substance: POTASSIUM CHLORIDE

REACTIONS (2)
  - Eyelid oedema [None]
  - Visual impairment [None]

NARRATIVE: CASE EVENT DATE: 20220218
